FAERS Safety Report 18868700 (Version 1)
Quarter: 2021Q1

REPORT INFORMATION
  Report Type: Report from Study
  Country: GB (occurrence: GB)
  Receive Date: 20210209
  Receipt Date: 20210209
  Transmission Date: 20210420
  Serious: Yes (Death)
  Sender: FDA-Public Use
  Company Number: GB-PERRIGO-21GB001643

PATIENT

DRUGS (11)
  1. DIAZEPAM. [Suspect]
     Active Substance: DIAZEPAM
  2. NORTRIPTYLINE [Suspect]
     Active Substance: NORTRIPTYLINE
  3. NORDAZEPAM [Suspect]
     Active Substance: NORDAZEPAM
  4. PARACETAMOL [Suspect]
     Active Substance: ACETAMINOPHEN
     Indication: PRODUCT USED FOR UNKNOWN INDICATION
     Route: 065
  5. AMPHETAMINE [Suspect]
     Active Substance: AMPHETAMINE
  6. ETIZOLAM [Suspect]
     Active Substance: ETIZOLAM
  7. AMITRIPTYLIN [Suspect]
     Active Substance: AMITRIPTYLINE
  8. OXAZEPAM. [Suspect]
     Active Substance: OXAZEPAM
  9. TEMAZEPAM. [Suspect]
     Active Substance: TEMAZEPAM
  10. CODEINE [Suspect]
     Active Substance: CODEINE
  11. MORPHINE [Suspect]
     Active Substance: MORPHINE

REACTIONS (1)
  - Toxicity to various agents [Fatal]
